FAERS Safety Report 15400818 (Version 1)
Quarter: 2018Q3

REPORT INFORMATION
  Report Type: Spontaneous
  Country: US (occurrence: US)
  Receive Date: 20180913
  Receipt Date: 20180913
  Transmission Date: 20181010
  Serious: Yes (Other)
  Sender: FDA-Public Use
  Company Number: None

PATIENT
  Age: 81 Year
  Sex: Male
  Weight: 78.2 kg

DRUGS (1)
  1. LEUCOVORIN INJECTION [Suspect]
     Active Substance: LEUCOVORIN CALCIUM
     Indication: COLON CANCER
     Route: 041
     Dates: start: 20151102, end: 20180709

REACTIONS (1)
  - Chills [None]

NARRATIVE: CASE EVENT DATE: 20180706
